FAERS Safety Report 7784281-2 (Version None)
Quarter: 2011Q3

REPORT INFORMATION
  Report Type: 
  Country: None (occurrence: None)
  Receive Date: 20110928
  Receipt Date: 20110914
  Transmission Date: 20111222
  Serious: Yes (Other)
  Sender: FDA-Public Use
  Company Number: PHHY2011BR82354

PATIENT
  Age: 48 Year
  Sex: Female

DRUGS (9)
  1. ARELIX ^AVENTIS PHARMA^ [Concomitant]
  2. GLIMEPIRIDE [Concomitant]
     Dosage: 4 MG, PER DAY
  3. RASILEZ [Suspect]
  4. GLIMEPIRIDE [Concomitant]
     Dosage: 8 MG, PER DAY
  5. PROPRANOLOL [Concomitant]
  6. RASILEZ HCT [Suspect]
  7. METFORMIN HCL [Suspect]
     Dosage: 1.7 MG, PER DAY
  8. CAPTOPRIL [Concomitant]
  9. NORFLOXACIN [Concomitant]
     Dosage: 800 UKN, PER DAY

REACTIONS (10)
  - HYPERTENSION [None]
  - ESCHERICHIA INFECTION [None]
  - BODY MASS INDEX INCREASED [None]
  - SWELLING FACE [None]
  - ABDOMINAL DISTENSION [None]
  - OEDEMA PERIPHERAL [None]
  - PROTEINURIA [None]
  - GLYCOSYLATED HAEMOGLOBIN INCREASED [None]
  - HAEMATURIA [None]
  - BLOOD UREA INCREASED [None]
